FAERS Safety Report 8571493-3 (Version None)
Quarter: 2012Q3

REPORT INFORMATION
  Report Type: 
  Country: None (occurrence: None)
  Receive Date: 20120806
  Receipt Date: 20120727
  Transmission Date: 20120928
  Serious: Yes (Other)
  Sender: FDA-Public Use
  Company Number: CA-JNJFOC-20120714592

PATIENT
  Sex: Female
  Weight: 81 kg

DRUGS (2)
  1. REMICADE [Suspect]
     Indication: CROHN'S DISEASE
     Route: 042
     Dates: start: 20090101
  2. METHOTREXATE [Concomitant]
     Route: 065

REACTIONS (1)
  - BASAL CELL CARCINOMA [None]
